FAERS Safety Report 9076995 (Version 1)
Quarter: 2013Q1

REPORT INFORMATION
  Report Type: Report from Study
  Country: US (occurrence: US)
  Receive Date: 20130129
  Receipt Date: 20130129
  Transmission Date: 20140127
  Serious: No
  Sender: FDA-Public Use
  Company Number: US-ABBOTT-12P-163-0940751-00

PATIENT
  Age: 40 None
  Sex: Female
  Weight: 72.64 kg

DRUGS (9)
  1. HUMIRA 40 MG/0.8 ML PEN [Suspect]
     Indication: INTESTINAL FISTULA REPAIR
     Dates: start: 20120506, end: 20120506
  2. HUMIRA 40 MG/0.8 ML PEN [Suspect]
     Indication: CROHN^S DISEASE
     Dates: start: 20120520, end: 20120520
  3. HUMIRA 40 MG/0.8 ML PEN [Suspect]
     Dates: start: 20120527
  4. CODEINE SULFATE [Concomitant]
     Indication: CROHN^S DISEASE
  5. CODEINE SULFATE [Concomitant]
     Indication: INFREQUENT BOWEL MOVEMENTS
  6. VITAMIN D [Concomitant]
     Indication: VITAMIN SUPPLEMENTATION
  7. CALCIUM [Concomitant]
     Indication: MINERAL SUPPLEMENTATION
  8. PRILOSEC [Concomitant]
     Indication: PRODUCT USED FOR UNKNOWN INDICATION
  9. VITAMIN B [Concomitant]
     Indication: PRODUCT USED FOR UNKNOWN INDICATION

REACTIONS (3)
  - Fistula [Not Recovered/Not Resolved]
  - Abnormal faeces [Not Recovered/Not Resolved]
  - Drug ineffective [Not Recovered/Not Resolved]
